FAERS Safety Report 19303576 (Version 1)
Quarter: 2021Q2

REPORT INFORMATION
  Report Type: Spontaneous
  Country: NL (occurrence: NL)
  Receive Date: 20210525
  Receipt Date: 20210525
  Transmission Date: 20210717
  Serious: Yes (Other)
  Sender: FDA-Public Use
  Company Number: NL-TEVA-2021-NL-1914363

PATIENT
  Sex: Male

DRUGS (7)
  1. CLOPIDOGREL TABLET   75MG / BRAND NAME NOT SPECIFIED [Concomitant]
     Active Substance: CLOPIDOGREL BISULFATE
     Dosage: THERAPY START AND END DATE: ASKU
  2. RISEDRONINEZUUR TABLET FO 35MG / BRAND NAME NOT SPECIFIED [Concomitant]
     Dosage: THERAPY START AND END DATE: ASKU
  3. SIMVASTATINE TABLET FO 40MG / BRAND NAME NOT SPECIFIED [Concomitant]
     Active Substance: SIMVASTATIN
     Dosage: THERAPY START AND END DATE: ASKU
  4. CALCIUMCARB/COLECALC TAB 1,25G/800IE (500MG CA) / BRAND NAME NOT SPECI [Concomitant]
     Active Substance: CALCIUM CARBONATE\VITAMIN D
     Dosage: THERAPY START AND END DATE: ASKU
  5. COTRIMOXAZOL 960 TABLET 160/800MG / BRAND NAME NOT SPECIFIED [Suspect]
     Active Substance: SULFAMETHOXAZOLE\TRIMETHOPRIM
     Indication: URINARY TRACT INFECTION
     Dosage: 2 DOSAGE FORMS DAILY;
     Route: 065
     Dates: start: 20210409, end: 20210419
  6. MACROGOL/ZOUTEN PDR V DRANK (MOVIC/MOLAX/LAXT/GEN) / BRAND NAME NOT SP [Concomitant]
     Dosage: THERAPY START AND END DATE: ASKU
  7. PARACETAMOL TABLET  500MG / BRAND NAME NOT SPECIFIED [Concomitant]
     Dosage: THERAPY START AND END DATE: ASKU

REACTIONS (4)
  - Hyponatraemia [Recovering/Resolving]
  - Renal impairment [Recovering/Resolving]
  - Nausea [Recovered/Resolved]
  - Diarrhoea [Recovered/Resolved]
